FAERS Safety Report 7735401-7 (Version None)
Quarter: 2011Q3

REPORT INFORMATION
  Report Type: 
  Country: None (occurrence: None)
  Receive Date: 20110907
  Receipt Date: 20110825
  Transmission Date: 20111222
  Serious: Yes (Death, Other)
  Sender: FDA-Public Use
  Company Number: CELGENEUS-087-21880-10091494

PATIENT
  Sex: Male
  Weight: 63.1 kg

DRUGS (13)
  1. ETODOLAC [Concomitant]
     Dosage: 400 MILLIGRAM
     Route: 048
     Dates: start: 20100729, end: 20100804
  2. METHYLCOBAL [Concomitant]
     Dosage: 1500 MICROGRAM
     Route: 048
     Dates: start: 20100729, end: 20100804
  3. GABAPENTIN [Concomitant]
     Dosage: 1200 MILLIGRAM
     Route: 048
     Dates: start: 20100729, end: 20100804
  4. REVLIMID [Suspect]
     Indication: MULTIPLE MYELOMA
     Dosage: 10 MILLIGRAM
     Route: 048
     Dates: start: 20100730, end: 20100803
  5. ITRACONAZOLE [Concomitant]
     Dosage: 200MG/20ML
     Route: 048
     Dates: start: 20100730, end: 20100804
  6. LASIX [Concomitant]
     Route: 065
  7. OMEPRAZOLE [Concomitant]
     Dosage: 20 MILLIGRAM
     Route: 048
     Dates: start: 20100729, end: 20100804
  8. MAGMITT [Concomitant]
     Dosage: 990 MILLIGRAM
     Route: 048
     Dates: start: 20100729, end: 20100804
  9. WARFARIN SODIUM [Concomitant]
     Dosage: 1 MILLIGRAM
     Route: 048
     Dates: start: 20100729, end: 20100730
  10. BACTRIM [Concomitant]
     Dosage: 1 T
     Route: 048
     Dates: start: 20100730, end: 20100803
  11. HEPARIN [Concomitant]
     Dosage: 30 MILLILITER
     Route: 050
     Dates: start: 20100729, end: 20100730
  12. ISOTONIC SODIUM CHLORIDE SOLUTION [Concomitant]
     Dosage: 250 MILLILITER
     Route: 050
     Dates: start: 20100729, end: 20100730
  13. DEXAMETHASONE [Suspect]
     Indication: MULTIPLE MYELOMA
     Dosage: 40 MILLIGRAM
     Route: 048
     Dates: start: 20100730, end: 20100730

REACTIONS (1)
  - PNEUMONIA [None]
